FAERS Safety Report 8145072-6 (Version None)
Quarter: 2012Q1

REPORT INFORMATION
  Report Type: 
  Country: None (occurrence: None)
  Receive Date: 20120217
  Receipt Date: 20120206
  Transmission Date: 20120608
  Serious: Yes (Other)
  Sender: FDA-Public Use
  Company Number: PHEH2012US003216

PATIENT
  Sex: Female

DRUGS (8)
  1. KETAMINE HYDROCHLORIDE [Suspect]
  2. CALMAX [Suspect]
  3. EYE DROPS [Concomitant]
  4. RECLAST [Suspect]
     Dosage: UNK UKN, UNK
     Route: 042
  5. ZOMETA [Suspect]
     Dosage: UNK UKN, UNK
  6. VITAMINS NOS [Concomitant]
  7. PREDNISONE [Concomitant]
  8. RESTASIS [Concomitant]

REACTIONS (6)
  - MUSCLE SPASMS [None]
  - DIARRHOEA [None]
  - NAUSEA [None]
  - RHEUMATOID ARTHRITIS [None]
  - CHILLS [None]
  - ABDOMINAL DISCOMFORT [None]
